FAERS Safety Report 9296116 (Version 1)
Quarter: 2013Q2

REPORT INFORMATION
  Report Type: Other
  Country: JP (occurrence: JP)
  Receive Date: 20130517
  Receipt Date: 20130517
  Transmission Date: 20140414
  Serious: Yes (Hospitalization)
  Sender: FDA-Public Use
  Company Number: JP-ACTELION-A-CH2012-61811

PATIENT
  Age: 74 Year
  Sex: Female
  Weight: 59.1 kg

DRUGS (16)
  1. TRACLEER [Suspect]
     Indication: PULMONARY HYPERTENSION
     Dosage: 125 MG, BID
     Route: 048
     Dates: start: 20110205, end: 20110324
  2. TRACLEER [Suspect]
     Dosage: 31.25 MG, BID
     Route: 048
     Dates: start: 20101025, end: 20101026
  3. TRACLEER [Suspect]
     Dosage: 62.5 MG, BID
     Route: 048
     Dates: start: 20100427, end: 20110204
  4. TRACLEER [Suspect]
     Dosage: 62.5 MG, BID
     Route: 048
     Dates: start: 20110325, end: 20110415
  5. BERAPROST SODIUM [Concomitant]
  6. WARFARIN [Concomitant]
  7. DILTIAZEM [Concomitant]
  8. AMLODIPINE BESILATE [Concomitant]
  9. CELIPROLOL [Concomitant]
  10. LANSOPRAZOLE [Concomitant]
  11. SULPIRIDE [Concomitant]
  12. ETIZOLAM [Concomitant]
  13. FLUNITRAZEPAM [Concomitant]
  14. IMIPRAMINE [Concomitant]
  15. ALFACALCIDOL [Concomitant]
  16. OXYGEN [Concomitant]

REACTIONS (5)
  - Hepatic function abnormal [Recovering/Resolving]
  - Aspartate aminotransferase increased [Recovering/Resolving]
  - Alanine aminotransferase increased [Recovering/Resolving]
  - Gamma-glutamyltransferase increased [Recovering/Resolving]
  - Blood alkaline phosphatase increased [Recovering/Resolving]
